FAERS Safety Report 6131451-5 (Version None)
Quarter: 2009Q1

REPORT INFORMATION
  Report Type: 
  Country: None (occurrence: None)
  Receive Date: 20090325
  Receipt Date: 20080826
  Transmission Date: 20090719
  Serious: Yes (Hospitalization, Other)
  Sender: FDA-Public Use
  Company Number: US-BRISTOL-MYERS SQUIBB COMPANY-14266563

PATIENT

DRUGS (1)
  1. ERBITUX [Suspect]

REACTIONS (2)
  - HOSPICE CARE [None]
  - NO ADVERSE EVENT [None]
